FAERS Safety Report 24910482 (Version 4)
Quarter: 2025Q3

REPORT INFORMATION
  Report Type: Spontaneous
  Country: EU (occurrence: EU)
  Receive Date: 20250131
  Receipt Date: 20250803
  Transmission Date: 20251020
  Serious: Yes (Hospitalization, Other)
  Sender: ALEXION PHARMACEUTICALS
  Company Number: EU-MYLANLABS-2025M1004270

PATIENT
  Age: 86 Year
  Sex: Male

DRUGS (29)
  1. DAPAGLIFLOZIN [Suspect]
     Active Substance: DAPAGLIFLOZIN
     Indication: Cardiac failure
     Route: 065
  2. CANDESARTAN CILEXETIL [Suspect]
     Active Substance: CANDESARTAN CILEXETIL
  3. METOPROLOL TARTRATE [Suspect]
     Active Substance: METOPROLOL TARTRATE
     Indication: Product used for unknown indication
     Route: 065
  4. CALCIUM CARBONATE [Suspect]
     Active Substance: CALCIUM CARBONATE
     Indication: Calcium deficiency
     Dosage: 2 DOSAGE FORM, QD
  5. CALCIUM CARBONATE [Suspect]
     Active Substance: CALCIUM CARBONATE
     Indication: Muscle spasms
     Dosage: 2 DOSAGE FORM, TID (START DATE: 07-JAN-2025, KALCIPOS TO 6 TABLETS, 2  TABLETS 3 TIMES A DAY)
     Dates: end: 20250112
  6. CALCIUM CARBONATE [Suspect]
     Active Substance: CALCIUM CARBONATE
     Dosage: 2 DOSAGE FORM, TID (START DATE: 07-JAN-2025, KALCIPOS TO 6 TABLETS, 2  TABLETS 3 TIMES A DAY)
     Dates: start: 20250107, end: 20250112
  7. MAGNESIUM HYDROXIDE [Suspect]
     Active Substance: MAGNESIUM HYDROXIDE
     Indication: Muscle spasms
     Dosage: 1 DOSAGE FORM, BID (1 TABLET IN THE MORNING AND ONE IN THE EVENING)
     Route: 065
  8. MAGNESIUM HYDROXIDE [Suspect]
     Active Substance: MAGNESIUM HYDROXIDE
     Dosage: 2 DOSAGE FORM, BID (2 TABLETS A DAY, ONE IN THE MORNING AND ONE IN EVENING)
     Route: 065
     Dates: end: 20250112
  9. EZETIMIBE [Suspect]
     Active Substance: EZETIMIBE
     Indication: Product used for unknown indication
     Route: 065
  10. NITROLINGUAL [Suspect]
     Active Substance: NITROGLYCERIN
     Indication: Chest pain
     Route: 065
  11. NITROLINGUAL [Suspect]
     Active Substance: NITROGLYCERIN
  12. EDOXABAN TOSYLATE [Suspect]
     Active Substance: EDOXABAN TOSYLATE
     Indication: Product used for unknown indication
     Route: 065
  13. EDOXABAN TOSYLATE [Suspect]
     Active Substance: EDOXABAN TOSYLATE
  14. CANDESARTAN CILEXETIL [Suspect]
     Active Substance: CANDESARTAN CILEXETIL
     Indication: Cardiac failure
     Route: 065
  15. ATORVASTATIN [Suspect]
     Active Substance: ATORVASTATIN
     Indication: Product used for unknown indication
     Route: 065
  16. ATORVASTATIN [Suspect]
     Active Substance: ATORVASTATIN
  17. Furix [Concomitant]
     Indication: Product used for unknown indication
     Route: 065
  18. Furix [Concomitant]
  19. ACETAMINOPHEN [Concomitant]
     Active Substance: ACETAMINOPHEN
     Indication: Product used for unknown indication
  20. ACETAMINOPHEN [Concomitant]
     Active Substance: ACETAMINOPHEN
  21. GABAPENTIN [Concomitant]
     Active Substance: GABAPENTIN
     Indication: Product used for unknown indication
     Route: 065
  22. GABAPENTIN [Concomitant]
     Active Substance: GABAPENTIN
  23. ZOLPIDEM [Concomitant]
     Active Substance: ZOLPIDEM TARTRATE
     Indication: Insomnia
     Route: 065
  24. ZOLPIDEM [Concomitant]
     Active Substance: ZOLPIDEM TARTRATE
  25. LINAGLIPTIN [Concomitant]
     Active Substance: LINAGLIPTIN
     Indication: Diabetes mellitus
     Route: 065
  26. LINAGLIPTIN [Concomitant]
     Active Substance: LINAGLIPTIN
  27. LINAGLIPTIN [Concomitant]
     Active Substance: LINAGLIPTIN
  28. B12 [Concomitant]
     Indication: Product used for unknown indication
     Route: 065
  29. B12 [Concomitant]

REACTIONS (10)
  - Hospitalisation [Recovered/Resolved]
  - Mycoplasma infection [Unknown]
  - Pneumonia [Unknown]
  - Palpitations [Not Recovered/Not Resolved]
  - Tremor [Unknown]
  - Drug ineffective [Unknown]
  - Diarrhoea [Not Recovered/Not Resolved]
  - Overdose [Unknown]
  - Off label use [Unknown]
  - Walking aid user [Unknown]
